FAERS Safety Report 4333231-X (Version None)
Quarter: 2004Q2

REPORT INFORMATION
  Report Type: 
  Country: None (occurrence: None)
  Receive Date: 20040401
  Receipt Date: 20040319
  Transmission Date: 20050107
  Serious: Yes (Hospitalization)
  Sender: FDA-Public Use
  Company Number: 2004UW05422

PATIENT
  Age: 51 Year
  Sex: Male

DRUGS (3)
  1. CRESTOR [Suspect]
     Dosage: 10 MG PO
     Route: 048
  2. ALLOPURINOL [Suspect]
  3. PROZAC [Concomitant]

REACTIONS (2)
  - DRUG INTERACTION POTENTIATION [None]
  - HEPATITIS ACUTE [None]
